FAERS Safety Report 4539978-4 (Version None)
Quarter: 2004Q4

REPORT INFORMATION
  Report Type: 
  Country: None (occurrence: None)
  Receive Date: 20041223
  Receipt Date: 20041208
  Transmission Date: 20050328
  Serious: Yes (Hospitalization)
  Sender: FDA-Public Use
  Company Number: 2004BI001249

PATIENT
  Age: 69 Year
  Sex: Male
  Weight: 83.9154 kg

DRUGS (4)
  1. AVONEX [Suspect]
     Indication: MULTIPLE SCLEROSIS
     Dosage: 30 UG; QW; IM
     Route: 030
     Dates: start: 20010101, end: 20011001
  2. BACLOFEN [Concomitant]
  3. MODAFINIL [Concomitant]
  4. SERTRALINE HCL [Concomitant]

REACTIONS (3)
  - DIFFICULTY IN WALKING [None]
  - MULTIPLE SCLEROSIS RELAPSE [None]
  - PROSTATE CANCER [None]
